FAERS Safety Report 8275759-6 (Version None)
Quarter: 2012Q2

REPORT INFORMATION
  Report Type: 
  Country: None (occurrence: None)
  Receive Date: 20120410
  Receipt Date: 20120410
  Transmission Date: 20120825
  Serious: Yes (Hospitalization)
  Sender: FDA-Public Use
  Company Number: None

PATIENT
  Age: 56 Year
  Sex: Male
  Weight: 85.4 kg

DRUGS (1)
  1. DIGOXIN [Suspect]
     Indication: CARDIAC FAILURE CONGESTIVE
     Dosage: MG EVERY DAY PO
     Route: 048
     Dates: start: 20120103, end: 20120204

REACTIONS (2)
  - TOXICITY TO VARIOUS AGENTS [None]
  - BRADYCARDIA [None]
